FAERS Safety Report 8362206-9 (Version None)
Quarter: 2012Q2

REPORT INFORMATION
  Report Type: 
  Country: None (occurrence: None)
  Receive Date: 20120515
  Receipt Date: 20120509
  Transmission Date: 20120825
  Serious: Yes (Hospitalization)
  Sender: FDA-Public Use
  Company Number: JP-MERCK-1111USA03058

PATIENT
  Age: 78 Year
  Sex: Male
  Weight: 63 kg

DRUGS (9)
  1. BASEN [Concomitant]
     Route: 048
  2. REBAMIPIDE [Concomitant]
     Route: 048
  3. CRESTOR [Concomitant]
     Route: 048
  4. YOUCOBAL [Concomitant]
     Route: 048
  5. JANUVIA [Suspect]
     Indication: DIABETES MELLITUS
     Route: 048
     Dates: start: 20110513, end: 20111115
  6. GLIMEPIRIDE [Concomitant]
     Route: 048
  7. PAIPELAC [Concomitant]
     Route: 048
  8. OLMESARTAN MEDOXOMIL [Suspect]
     Indication: HYPERTENSION
     Route: 048
     Dates: start: 20110513, end: 20111101
  9. VE NICOTINATE [Concomitant]
     Route: 048

REACTIONS (2)
  - INTERSTITIAL LUNG DISEASE [None]
  - ANTINUCLEAR ANTIBODY POSITIVE [None]
